FAERS Safety Report 11330416 (Version 1)
Quarter: 2015Q3

REPORT INFORMATION
  Report Type: Spontaneous
  Country: US (occurrence: US)
  Receive Date: 20150803
  Receipt Date: 20150803
  Transmission Date: 20151125
  Serious: Yes (Other)
  Sender: FDA-Public Use
  Company Number: US-ACTAVIS-2015-15437

PATIENT
  Age: 45 Year
  Sex: Female
  Weight: 73 kg

DRUGS (4)
  1. EFFEXOR [Suspect]
     Active Substance: VENLAFAXINE HYDROCHLORIDE
     Dosage: UNK, DAILY
     Route: 065
     Dates: start: 200006, end: 200007
  2. SYNTHROID [Concomitant]
     Active Substance: LEVOTHYROXINE SODIUM
     Dosage: 75 MG, DAILY
     Route: 065
  3. LIOTHYRONINE [Concomitant]
     Active Substance: LIOTHYRONINE
     Dosage: 5 MG, DAILY
     Route: 065
  4. TAMOXIFEN CITRATE (ACTAVIS LABORATORIES FL) [Suspect]
     Active Substance: TAMOXIFEN CITRATE
     Indication: BREAST CANCER
     Dosage: UNK; DAILY
     Route: 065
     Dates: start: 200005, end: 200007

REACTIONS (10)
  - Neuralgia [Unknown]
  - Vertigo [Unknown]
  - Nerve injury [Unknown]
  - Vomiting [Unknown]
  - Mood altered [Unknown]
  - Malaise [Unknown]
  - Pain [Unknown]
  - Stevens-Johnson syndrome [Unknown]
  - Fatigue [Unknown]
  - Rash [Unknown]

NARRATIVE: CASE EVENT DATE: 200007
